FAERS Safety Report 4750187-6 (Version None)
Quarter: 2005Q3

REPORT INFORMATION
  Report Type: 
  Country: None (occurrence: None)
  Receive Date: 20050819
  Receipt Date: 20050808
  Transmission Date: 20060218
  Serious: Yes (Hospitalization, Other)
  Sender: FDA-Public Use
  Company Number: HQWYE764606DEC04

PATIENT
  Age: 51 Year
  Sex: Male

DRUGS (2)
  1. CELLCEPT [Suspect]
     Indication: PROPHYLAXIS AGAINST TRANSPLANT REJECTION
     Dosage: 500 MG 3X PER 1 DAY, ORAL
     Route: 048
     Dates: start: 20040926
  2. PROGRAF [Suspect]
     Indication: PROPHYLAXIS AGAINST TRANSPLANT REJECTION
     Dosage: 3 MG 2X PER 1 DAY, ORAL
     Route: 048
     Dates: start: 20040101

REACTIONS (2)
  - HYPERPARATHYROIDISM SECONDARY [None]
  - SURGICAL PROCEDURE REPEATED [None]
